FAERS Safety Report 12121281 (Version 1)
Quarter: 2016Q1

REPORT INFORMATION
  Report Type: Spontaneous
  Country: US (occurrence: US)
  Receive Date: 20160226
  Receipt Date: 20160226
  Transmission Date: 20160526
  Serious: No
  Sender: FDA-Public Use
  Company Number: US-ALLERGAN-1420900US

PATIENT
  Age: 66 Year
  Sex: Male

DRUGS (4)
  1. CLONAZEPAM. [Concomitant]
     Active Substance: CLONAZEPAM
     Indication: STRESS
     Dosage: UNK UNK, QOD
     Route: 048
  2. CLONAZEPAM. [Concomitant]
     Active Substance: CLONAZEPAM
     Indication: SLEEP DISORDER
     Dosage: UNK UNK, QD
     Route: 048
  3. CLONAZEPAM. [Concomitant]
     Active Substance: CLONAZEPAM
     Indication: DEPRESSION
  4. REFRESH OPTIVE [Suspect]
     Active Substance: CARBOXYMETHYLCELLULOSE SODIUM\GLYCERIN
     Indication: PRODUCT USED FOR UNKNOWN INDICATION
     Dosage: 2 GTT, QHS
     Route: 047
     Dates: start: 20140801, end: 20140925

REACTIONS (5)
  - Ocular discomfort [Recovered/Resolved]
  - Blepharitis [Unknown]
  - Visual acuity reduced [Unknown]
  - Eye irritation [Recovered/Resolved]
  - Dizziness [Unknown]
